FAERS Safety Report 12606930 (Version 1)
Quarter: 2016Q3

REPORT INFORMATION
  Report Type: Spontaneous
  Country: US (occurrence: US)
  Receive Date: 20160729
  Receipt Date: 20160729
  Transmission Date: 20161109
  Serious: Yes (Hospitalization)
  Sender: FDA-Public Use
  Company Number: US-IGSA-GTI003328

PATIENT
  Age: 52 Year
  Sex: Male
  Weight: 74 kg

DRUGS (5)
  1. GAMUNEX-C [Suspect]
     Active Substance: HUMAN IMMUNOGLOBULIN G
     Indication: HYPOGAMMAGLOBULINAEMIA
     Route: 042
     Dates: start: 20150518
  2. AMPICILLIN [Concomitant]
     Active Substance: AMPICILLIN
  3. ZOVIRAX [Concomitant]
     Active Substance: ACYCLOVIR
  4. GAMUNEX-C [Suspect]
     Active Substance: HUMAN IMMUNOGLOBULIN G
     Indication: HYPOGAMMAGLOBULINAEMIA
     Route: 042
     Dates: end: 20150518
  5. MULTIVITAMIN /00097801/ [Concomitant]
     Active Substance: VITAMINS

REACTIONS (2)
  - Hemiparesis [Recovered/Resolved]
  - Thrombotic stroke [Recovered/Resolved]

NARRATIVE: CASE EVENT DATE: 20150604
